FAERS Safety Report 25233817 (Version 1)
Quarter: 2025Q2

REPORT INFORMATION
  Report Type: Spontaneous
  Country: US (occurrence: US)
  Receive Date: 20250424
  Receipt Date: 20250424
  Transmission Date: 20250716
  Serious: No
  Sender: ACCORD
  Company Number: US-Accord-433065

PATIENT
  Sex: Female
  Weight: 57.61 kg

DRUGS (1)
  1. OXYBUTYNIN [Suspect]
     Active Substance: OXYBUTYNIN
     Indication: Hyperhidrosis

REACTIONS (2)
  - Drug effective for unapproved indication [Unknown]
  - Product availability issue [Unknown]
